FAERS Safety Report 8810323 (Version 1)
Quarter: 2012Q4

REPORT INFORMATION
  Report Type: 
  Country: US (occurrence: US)
  Receive Date: 20120926
  Receipt Date: 20120926
  Transmission Date: 20130627
  Serious: No
  Sender: FDA-Public Use
  Company Number: US-009507513-1209USA008841

PATIENT
  Sex: Male

DRUGS (4)
  1. COZAAR [Suspect]
     Route: 048
  2. AMLODIPINE [Suspect]
  3. VENLAFAXINE HYDROCHLORIDE [Suspect]
  4. LEXAPRO [Suspect]

REACTIONS (4)
  - Drug ineffective [Unknown]
  - Back pain [Unknown]
  - Pain in extremity [Unknown]
  - Abdominal pain upper [Unknown]
